FAERS Safety Report 4889345-9 (Version None)
Quarter: 2006Q1

REPORT INFORMATION
  Report Type: 
  Country: None (occurrence: None)
  Receive Date: 20060120
  Receipt Date: 20060101
  Transmission Date: 20060701
  Serious: Yes (Death, Other)
  Sender: FDA-Public Use
  Company Number: 200610237BWH

PATIENT

DRUGS (1)
  1. SORAFENIB [Suspect]
     Indication: MESOTHELIOMA
     Dosage: 400 MG BID ORAL
     Route: 048
     Dates: start: 20050101, end: 20050701

REACTIONS (2)
  - MALIGNANT NEOPLASM PROGRESSION [None]
  - MESOTHELIOMA [None]
